FAERS Safety Report 9027054 (Version 12)
Quarter: 2019Q3

REPORT INFORMATION
  Report Type: Spontaneous
  Country: CA (occurrence: CA)
  Receive Date: 20130123
  Receipt Date: 20190915
  Transmission Date: 20191005
  Serious: Yes (Death, Hospitalization)
  Sender: FDA-Public Use
  Company Number: CA-CELGENEUS-028-21880-12111396

PATIENT
  Age: 60 Year
  Sex: Male
  Weight: 120.2 kg

DRUGS (51)
  1. DEXAMETHASONE. [Suspect]
     Active Substance: DEXAMETHASONE
     Indication: PLASMA CELL MYELOMA
     Dosage: 40 MILLIGRAM
     Route: 048
     Dates: start: 20120831
  2. FENTANYL. [Concomitant]
     Active Substance: FENTANYL
  3. PREDNISONE. [Concomitant]
     Active Substance: PREDNISONE
  4. ZOMETA [Concomitant]
     Active Substance: ZOLEDRONIC ACID
  5. LYRICA [Concomitant]
     Active Substance: PREGABALIN
  6. PANTOPRAZOLE [Concomitant]
     Active Substance: PANTOPRAZOLE
  7. CIPROFLOXACIN. [Concomitant]
     Active Substance: CIPROFLOXACIN
     Route: 065
     Dates: start: 20130101, end: 20130109
  8. BISOPROLOL FURAMATE [Concomitant]
  9. OMEPRAZOLE. [Concomitant]
     Active Substance: OMEPRAZOLE
  10. CYCLOPHOSPHAMIDE. [Concomitant]
     Active Substance: CYCLOPHOSPHAMIDE
  11. HYDROMORPHONE CONTIN [Concomitant]
     Active Substance: HYDROMORPHONE HYDROCHLORIDE
  12. CODEINE SYRUP [Concomitant]
  13. REVLIMID [Suspect]
     Active Substance: LENALIDOMIDE
     Indication: PLASMA CELL MYELOMA
     Dosage: 25 MILLIGRAM
     Route: 048
     Dates: start: 20120831, end: 20121105
  14. RED BLOOD CELLS [Concomitant]
     Active Substance: HUMAN RED BLOOD CELL
  15. OXYGEN. [Concomitant]
     Active Substance: OXYGEN
  16. TYLENOL [Concomitant]
     Active Substance: ACETAMINOPHEN
  17. AMOXCLAV [Concomitant]
     Active Substance: AMOXICILLIN\CLAVULANIC ACID
     Route: 065
     Dates: start: 20130103, end: 20130109
  18. FLEET ENEMA [Concomitant]
     Active Substance: SODIUM PHOSPHATE, DIBASIC\SODIUM PHOSPHATE, MONOBASIC
  19. NYSTATIN. [Concomitant]
     Active Substance: NYSTATIN
  20. SULCRATE [Concomitant]
     Active Substance: SUCRALFATE
  21. CEFTRIAXONE. [Concomitant]
     Active Substance: CEFTRIAXONE
  22. ASA [Concomitant]
     Active Substance: ASPIRIN
  23. LORAZEPAM. [Concomitant]
     Active Substance: LORAZEPAM
  24. DILAUDID [Concomitant]
     Active Substance: HYDROMORPHONE HYDROCHLORIDE
  25. MORPHINE [Concomitant]
     Active Substance: MORPHINE
  26. NORMAL SALINE [Concomitant]
     Active Substance: SODIUM CHLORIDE
  27. PEGLYTE [Concomitant]
     Active Substance: POLYETHYLENE GLYCOL 3350\POTASSIUM CHLORIDE\SODIUM BICARBONATE\SODIUM CHLORIDE\SODIUM SULFATE
  28. AMLODIPINE [Concomitant]
     Active Substance: AMLODIPINE BESYLATE
  29. K-DUR [Concomitant]
     Active Substance: POTASSIUM CHLORIDE
  30. MAGNESIUM [Concomitant]
     Active Substance: MAGNESIUM
  31. FLEXERIL [Concomitant]
     Active Substance: CYCLOBENZAPRINE HYDROCHLORIDE
  32. DELATESTRYL [Concomitant]
     Active Substance: TESTOSTERONE ENANTHATE
  33. ATACAND [Concomitant]
     Active Substance: CANDESARTAN CILEXETIL
  34. CYCLOBENZAPRINE HCL [Concomitant]
     Active Substance: CYCLOBENZAPRINE HYDROCHLORIDE
  35. FRAGMIN [Concomitant]
     Active Substance: DALTEPARIN SODIUM
  36. PIPERACILLIN AND TAZOBACTAM [Concomitant]
     Active Substance: PIPERACILLIN SODIUM\TAZOBACTAM SODIUM
  37. VANCOMYCIN [Concomitant]
     Active Substance: VANCOMYCIN
  38. GASTROGRAFIN [Concomitant]
     Active Substance: DIATRIZOATE MEGLUMINE\DIATRIZOATE SODIUM
  39. DEXTROSE. [Concomitant]
     Active Substance: DEXTROSE
  40. GOLYTELY [Concomitant]
     Active Substance: POLYETHYLENE GLYCOL 3350\POTASSIUM CHLORIDE\SODIUM BICARBONATE\SODIUM CHLORIDE\SODIUM SULFATE ANHYDROUS
  41. VENTOLIN [Concomitant]
     Active Substance: ALBUTEROL SULFATE
  42. LASIX [Concomitant]
     Active Substance: FUROSEMIDE
  43. VELCADE [Concomitant]
     Active Substance: BORTEZOMIB
  44. DULCOLAX NOS [Concomitant]
     Active Substance: BISACODYL OR DOCUSATE SODIUM
  45. PHOSPHATE EFFERVESCENT [Concomitant]
  46. BENADRYL [Concomitant]
     Active Substance: DIPHENHYDRAMINE HYDROCHLORIDE
  47. PROCHLORPERAZINE. [Concomitant]
     Active Substance: PROCHLORPERAZINE
  48. FLOVENT [Concomitant]
     Active Substance: FLUTICASONE PROPIONATE
  49. KCL [Concomitant]
     Active Substance: POTASSIUM CHLORIDE
  50. PEG [Concomitant]
     Active Substance: POLYETHYLENE GLYCOLS
  51. TRAZODONE [Concomitant]
     Active Substance: TRAZODONE HYDROCHLORIDE

REACTIONS (3)
  - Spinal cord compression [Not Recovered/Not Resolved]
  - Adenocarcinoma of colon [Fatal]
  - Streptococcal bacteraemia [Recovered/Resolved]

NARRATIVE: CASE EVENT DATE: 20121105
